FAERS Safety Report 25934833 (Version 1)
Quarter: 2025Q4

REPORT INFORMATION
  Report Type: Spontaneous
  Country: US (occurrence: None)
  Receive Date: 20251016
  Receipt Date: 20251016
  Transmission Date: 20260117
  Serious: Yes (Hospitalization)
  Sender: FDA-CTU
  Company Number: None

PATIENT
  Age: 57 Year
  Sex: Male

DRUGS (6)
  1. GAMMAGARD LIQUID [Suspect]
     Active Substance: HUMAN IMMUNOGLOBULIN G
     Indication: Chronic inflammatory demyelinating polyradiculoneuropathy
     Dosage: OTHER FREQUENCY : EVERY 3 WEEKS;?
     Route: 042
     Dates: start: 20250828
  2. EPINEPHRINE AUTO-INJ [Concomitant]
  3. NORMAL SALINE FLUSH (5ML) [Concomitant]
  4. SODIUM CHLOR (500ML/BAG) [Concomitant]
  5. DIPHENHYDRAMINE (ALLERGY ) [Concomitant]
  6. ACETAMINOPHEN [Concomitant]
     Active Substance: ACETAMINOPHEN

REACTIONS (3)
  - Asthenia [None]
  - Condition aggravated [None]
  - Peripheral sensory neuropathy [None]

NARRATIVE: CASE EVENT DATE: 20250904
